FAERS Safety Report 4363799-9 (Version None)
Quarter: 2004Q2

REPORT INFORMATION
  Report Type: 
  Country: None (occurrence: None)
  Receive Date: 20040524
  Receipt Date: 20040514
  Transmission Date: 20050107
  Serious: Yes (Other)
  Sender: FDA-Public Use
  Company Number: DE-MERCK-0405DEU00105

PATIENT
  Age: 74 Year
  Sex: Male

DRUGS (2)
  1. [THERAPY UNSPECIFIED] [Concomitant]
     Indication: ACUTE MYELOID LEUKAEMIA
     Route: 065
  2. PRIMAXIN [Suspect]
     Indication: PNEUMONIA
     Route: 051
     Dates: start: 20040501, end: 20040511

REACTIONS (2)
  - CLOSTRIDIUM COLITIS [None]
  - DIARRHOEA HAEMORRHAGIC [None]
